FAERS Safety Report 8534115-3 (Version None)
Quarter: 2012Q3

REPORT INFORMATION
  Report Type: 
  Country: None (occurrence: None)
  Receive Date: 20120724
  Receipt Date: 20120712
  Transmission Date: 20120928
  Serious: Yes (Hospitalization, Disabling)
  Sender: FDA-Public Use
  Company Number: US-009507513-1202USA00210

PATIENT

DRUGS (5)
  1. FOSAMAX [Suspect]
     Indication: OSTEOPOROSIS
     Dosage: 70 MG, UNK
     Route: 048
     Dates: start: 19981201, end: 20080101
  2. FOSAMAX [Suspect]
     Dosage: 70 MG, QW
     Route: 048
     Dates: start: 20080101, end: 20100101
  3. METFORMIN HYDROCHLORIDE [Concomitant]
     Indication: DIABETES MELLITUS
     Dosage: UNK
     Dates: start: 20000101
  4. FOSAMAX [Suspect]
     Dosage: 70 MG, UNK
     Route: 048
     Dates: start: 20080101, end: 20100101
  5. FOSAMAX [Suspect]
     Dosage: 70 MG, QW
     Route: 048
     Dates: start: 20080101, end: 20100101

REACTIONS (18)
  - HYPOGLYCAEMIA [None]
  - ORAL PAIN [None]
  - FALL [None]
  - HYPOAESTHESIA [None]
  - DIARRHOEA [None]
  - WOUND [None]
  - HAEMORRHAGIC ANAEMIA [None]
  - FEMUR FRACTURE [None]
  - HYPERTENSION [None]
  - BLOOD CHOLESTEROL INCREASED [None]
  - BACK PAIN [None]
  - FOOT FRACTURE [None]
  - TOOTH DISORDER [None]
  - UPPER RESPIRATORY TRACT INFECTION [None]
  - BALANCE DISORDER [None]
  - WRIST FRACTURE [None]
  - DIABETIC RETINOPATHY [None]
  - PYREXIA [None]
